FAERS Safety Report 24167821 (Version 1)
Quarter: 2024Q3

REPORT INFORMATION
  Report Type: Spontaneous
  Country: US (occurrence: None)
  Receive Date: 20240801
  Receipt Date: 20240801
  Transmission Date: 20241016
  Serious: No
  Sender: Public
  Company Number: None

PATIENT
  Age: 65 Year
  Sex: Male
  Weight: 62.1 kg

DRUGS (8)
  1. BOTOX [Suspect]
     Active Substance: ONABOTULINUMTOXINA
     Indication: Dystonia
     Dates: start: 20240522, end: 20240522
  2. INSULIN [Concomitant]
  3. MESALAMINE [Concomitant]
  4. LISINOPRIL [Concomitant]
  5. Rosouvastatin [Concomitant]
  6. EZETIMIBE [Concomitant]
  7. Freestyle ibre 3 [Concomitant]
  8. Glucose Monitor [Concomitant]

REACTIONS (1)
  - Trigger finger [None]

NARRATIVE: CASE EVENT DATE: 20240522
